FAERS Safety Report 15010606 (Version 4)
Quarter: 2019Q1

REPORT INFORMATION
  Report Type: Spontaneous
  Country: US (occurrence: US)
  Receive Date: 20180614
  Receipt Date: 20190125
  Transmission Date: 20190417
  Serious: Yes (Hospitalization)
  Sender: FDA-Public Use
  Company Number: US-OTSUKA-2018_015299

PATIENT
  Sex: Male

DRUGS (7)
  1. ABILIFY [Suspect]
     Active Substance: ARIPIPRAZOLE
     Indication: ANXIETY
     Dosage: 10 MG, QD
     Route: 065
     Dates: start: 20060323
  2. ARIPIPRAZOLE. [Concomitant]
     Active Substance: ARIPIPRAZOLE
     Indication: PRODUCT USED FOR UNKNOWN INDICATION
     Dosage: UNK
     Route: 065
     Dates: start: 20160129, end: 201702
  3. ABILIFY [Suspect]
     Active Substance: ARIPIPRAZOLE
     Indication: POST-TRAUMATIC STRESS DISORDER
  4. ABILIFY [Suspect]
     Active Substance: ARIPIPRAZOLE
     Indication: BIPOLAR DISORDER
     Dosage: 20 MG, QD
     Route: 065
     Dates: end: 201607
  5. ABILIFY [Suspect]
     Active Substance: ARIPIPRAZOLE
     Indication: SOCIAL ANXIETY DISORDER
  6. ABILIFY [Suspect]
     Active Substance: ARIPIPRAZOLE
     Indication: PSYCHOTIC DISORDER
  7. ABILIFY [Suspect]
     Active Substance: ARIPIPRAZOLE
     Indication: MAJOR DEPRESSION

REACTIONS (15)
  - Gambling disorder [Recovered/Resolved]
  - Compulsions [Unknown]
  - Anxiety [Unknown]
  - Product use in unapproved indication [Unknown]
  - Injury [Unknown]
  - Anhedonia [Unknown]
  - Eating disorder [Recovered/Resolved]
  - Emotional distress [Unknown]
  - Tardive dyskinesia [Recovered/Resolved]
  - Economic problem [Unknown]
  - Compulsive shopping [Recovered/Resolved]
  - Condition aggravated [Recovered/Resolved]
  - Homeless [Unknown]
  - Mental disorder [Unknown]
  - Pain [Unknown]

NARRATIVE: CASE EVENT DATE: 2007
